FAERS Safety Report 13144942 (Version 1)
Quarter: 2017Q1

REPORT INFORMATION
  Report Type: Report from Study
  Country: IT (occurrence: JP)
  Receive Date: 20170124
  Receipt Date: 20170124
  Transmission Date: 20170428
  Serious: Yes (Death, Other)
  Sender: FDA-Public Use
  Company Number: IT-SIGMA-TAU US-2016STPI000864

PATIENT
  Age: 73 Year
  Sex: Female

DRUGS (8)
  1. URSODEOXYCHOLIC ACID [Suspect]
     Active Substance: URSODIOL
     Indication: PRODUCT USED FOR UNKNOWN INDICATION
     Dosage: UNK
     Dates: end: 20160213
  2. LANSOPRAZOLE. [Concomitant]
     Active Substance: LANSOPRAZOLE
     Indication: PRODUCT USED FOR UNKNOWN INDICATION
     Dosage: UNK
     Dates: end: 20160213
  3. MAGMITT [Concomitant]
     Active Substance: MAGNESIUM OXIDE
     Indication: PRODUCT USED FOR UNKNOWN INDICATION
     Dosage: UNK
     Dates: start: 20160105, end: 20160213
  4. INSULIN GLARGINE [Concomitant]
     Active Substance: INSULIN GLARGINE
     Indication: PRODUCT USED FOR UNKNOWN INDICATION
     Dosage: UNK
     Dates: start: 20160204, end: 20160213
  5. CARNITOR [Suspect]
     Active Substance: LEVOCARNITINE
     Indication: CARNITINE DEFICIENCY
     Dosage: 1500 MG, TID
     Dates: start: 20151229, end: 20160214
  6. MONILAC [Concomitant]
     Active Substance: LACTULOSE
     Indication: PRODUCT USED FOR UNKNOWN INDICATION
     Dosage: UNK
     Dates: end: 20160213
  7. LIVACT                             /00847901/ [Concomitant]
     Active Substance: ISOLEUCINE\LEUCINE\VALINE
     Indication: PRODUCT USED FOR UNKNOWN INDICATION
     Dosage: UNK
     Dates: start: 20160105, end: 20160213
  8. VOGLIBOSE [Concomitant]
     Active Substance: VOGLIBOSE
     Indication: PRODUCT USED FOR UNKNOWN INDICATION
     Dosage: UNK
     Dates: start: 20160114, end: 20160213

REACTIONS (3)
  - Coma hepatic [Fatal]
  - White blood cell count decreased [Unknown]
  - Ascites [Fatal]

NARRATIVE: CASE EVENT DATE: 20160120
